FAERS Safety Report 8903290 (Version 1)
Quarter: 2012Q4

REPORT INFORMATION
  Report Type: 
  Country: US (occurrence: US)
  Receive Date: 20121112
  Receipt Date: 20121112
  Transmission Date: 20130627
  Serious: Yes (Hospitalization, Other)
  Sender: FDA-Public Use
  Company Number: US-MERCK-1211USA002511

PATIENT
  Sex: Male

DRUGS (5)
  1. RIBAVIRIN [Suspect]
     Indication: HEPATITIS C
     Dosage: UNK
     Dates: start: 20050204, end: 20071004
  2. RIBAVIRIN [Suspect]
     Dosage: UNK
     Dates: start: 20121022
  3. PEGINTRON [Suspect]
     Indication: HEPATITIS C
     Dosage: UNK
     Dates: start: 20121022
  4. PEGASYS [Suspect]
     Indication: HEPATITIS C
     Dosage: UNK
     Dates: start: 20050204, end: 200508
  5. PEGASYS [Suspect]
     Dosage: UNK
     Dates: start: 200512, end: 20071004

REACTIONS (7)
  - Suicide attempt [Unknown]
  - Depression [Unknown]
  - Fatigue [Unknown]
  - Skin exfoliation [Unknown]
  - Hepatitis C virus test positive [Unknown]
  - Malaise [Unknown]
  - Emotional disorder [Unknown]
